FAERS Safety Report 5922265-7 (Version None)
Quarter: 2008Q4

REPORT INFORMATION
  Report Type: 
  Country: None (occurrence: None)
  Receive Date: 20081017
  Receipt Date: 20081007
  Transmission Date: 20090506
  Serious: Yes (Death, Hospitalization, Other)
  Sender: FDA-Public Use
  Company Number: US-AVENTIS-200814141US

PATIENT
  Sex: Male
  Weight: 127 kg

DRUGS (1)
  1. KETEK [Suspect]
     Dosage: DOSE: UNK
     Dates: start: 20050310, end: 20050331

REACTIONS (28)
  - ALPHA 1 FOETOPROTEIN INCREASED [None]
  - ANAEMIA [None]
  - ANAEMIA OF CHRONIC DISEASE [None]
  - ANTINUCLEAR ANTIBODY INCREASED [None]
  - ASCITES [None]
  - AUTOIMMUNE DISORDER [None]
  - BLOOD CREATININE INCREASED [None]
  - BLOOD IMMUNOGLOBULIN A INCREASED [None]
  - BLOOD IMMUNOGLOBULIN G INCREASED [None]
  - C-REACTIVE PROTEIN INCREASED [None]
  - CRYPTOGENIC CIRRHOSIS [None]
  - DOUBLE STRANDED DNA ANTIBODY [None]
  - GAIT DISTURBANCE [None]
  - GAMMOPATHY [None]
  - GENE MUTATION [None]
  - HAEMOCHROMATOSIS [None]
  - HEPATIC FAILURE [None]
  - HEPATIC STEATOSIS [None]
  - HYPOVITAMINOSIS [None]
  - INTERNATIONAL NORMALISED RATIO INCREASED [None]
  - LIGHT CHAIN ANALYSIS INCREASED [None]
  - LIVER FUNCTION TEST ABNORMAL [None]
  - OEDEMA PERIPHERAL [None]
  - PROTEINURIA [None]
  - RED BLOOD CELL SEDIMENTATION RATE INCREASED [None]
  - RENAL FAILURE [None]
  - RHEUMATOID FACTOR POSITIVE [None]
  - SERUM FERRITIN INCREASED [None]
